FAERS Safety Report 17110299 (Version 4)
Quarter: 2020Q1

REPORT INFORMATION
  Report Type: Spontaneous
  Country: FR (occurrence: FR)
  Receive Date: 20191204
  Receipt Date: 20200228
  Transmission Date: 20200409
  Serious: Yes (Hospitalization, Other)
  Sender: FDA-Public Use
  Company Number: FR-PFIZER INC-2019517799

PATIENT
  Age: 60 Year
  Sex: Male

DRUGS (11)
  1. EPLERENONE. [Suspect]
     Active Substance: EPLERENONE
     Indication: MYOCARDIAL INFARCTION
     Dosage: 25 MG, 1X/DAY (AT LUNCH)
     Route: 048
     Dates: start: 2019
  2. CARTEOL LP [Interacting]
     Active Substance: CARTEOLOL HYDROCHLORIDE
     Dosage: 2 GTT, 1X/DAY
     Route: 047
     Dates: start: 2019, end: 20191120
  3. TAREG [Interacting]
     Active Substance: VALSARTAN
     Indication: MYOCARDIAL INFARCTION
     Dosage: 40 MG, 1X/DAY (IN THE EVENING)
     Route: 048
     Dates: start: 2019
  4. FUROSEMIDE. [Interacting]
     Active Substance: FUROSEMIDE
     Indication: MYOCARDIAL INFARCTION
     Dosage: 40 MG, 1X/DAY (IN THE MORNING)
     Route: 048
     Dates: start: 2019
  5. ATORVASTATIN CALCIUM. [Interacting]
     Active Substance: ATORVASTATIN CALCIUM
     Indication: MYOCARDIAL INFARCTION
     Dosage: 80 MG, 1X/DAY
     Route: 048
     Dates: start: 2019
  6. COLCHICINE. [Interacting]
     Active Substance: COLCHICINE
     Indication: MYOCARDIAL INFARCTION
     Dosage: 1 MG, 1X/DAY (IN THE EVENING)
     Route: 048
     Dates: start: 2019
  7. BISOPROLOL [Interacting]
     Active Substance: BISOPROLOL
     Indication: CARDIAC FAILURE
     Dosage: 1.25 MG, 1X/DAY
     Route: 048
     Dates: start: 2019, end: 2019
  8. KARDEGIC [Interacting]
     Active Substance: ASPIRIN DL-LYSINE
     Indication: MYOCARDIAL INFARCTION
     Dosage: 75 MG, 1X/DAY, (1 DOSING UNIT AT LUNCH)
     Route: 048
     Dates: start: 2019
  9. BRILIQUE [Interacting]
     Active Substance: TICAGRELOR
     Indication: MYOCARDIAL INFARCTION
     Dosage: 90 MG, 1X/DAY (1 DOSING UNIT)
     Route: 048
     Dates: start: 2019, end: 201912
  10. BISOPROLOL [Interacting]
     Active Substance: BISOPROLOL
     Indication: MYOCARDIAL INFARCTION
  11. CARTEOL LP [Interacting]
     Active Substance: CARTEOLOL HYDROCHLORIDE
     Indication: GLAUCOMA
     Dosage: 2 GTT, 1X/DAY (1 DROP PER DAY IN EACH EYE)
     Route: 047
     Dates: end: 2019

REACTIONS (9)
  - Cardiac failure [Unknown]
  - Weight decreased [Recovered/Resolved]
  - Labelled drug-drug interaction medication error [Unknown]
  - Visual impairment [Not Recovered/Not Resolved]
  - Contraindicated product administered [Unknown]
  - Myocardial infarction [Unknown]
  - Hypotension [Unknown]
  - Vertigo [Recovered/Resolved]
  - Cataract [Recovering/Resolving]

NARRATIVE: CASE EVENT DATE: 2019
